FAERS Safety Report 15894886 (Version 6)
Quarter: 2019Q2

REPORT INFORMATION
  Report Type: Report from Study
  Country: IT (occurrence: IT)
  Receive Date: 20190131
  Receipt Date: 20190614
  Transmission Date: 20190711
  Serious: Yes (Hospitalization)
  Sender: FDA-Public Use
  Company Number: IT-SA-2017SA221755

PATIENT
  Age: 38 Year
  Sex: Female
  Weight: 65 kg

DRUGS (6)
  1. ACICLOVIR [Concomitant]
     Active Substance: ACYCLOVIR
     Indication: PROPHYLAXIS
     Dosage: 400 MG,UNK
     Route: 048
     Dates: start: 20171022, end: 20171122
  2. ALEMTUZUMAB [Suspect]
     Active Substance: ALEMTUZUMAB
     Dosage: UNK UNK,UNK
     Route: 041
     Dates: start: 20171030, end: 20171030
  3. RANITIDINE HYDROCHLORIDE. [Concomitant]
     Active Substance: RANITIDINE HYDROCHLORIDE
     Indication: PROPHYLAXIS
     Dosage: 50 MG,UNK
     Route: 042
     Dates: start: 20171023, end: 20171025
  4. CHLORPHENAMINE [Concomitant]
     Active Substance: CHLORPHENIRAMINE MALEATE
     Indication: PROPHYLAXIS
     Dosage: 10 MG,UNK
     Route: 030
     Dates: start: 20171022, end: 20171030
  5. METHYLPREDNISOLONE. [Concomitant]
     Active Substance: METHYLPREDNISOLONE
     Indication: PROPHYLAXIS
     Dosage: 1000 MG,UNK
     Route: 042
     Dates: start: 20171023, end: 20171025
  6. ALEMTUZUMAB [Suspect]
     Active Substance: ALEMTUZUMAB
     Indication: RELAPSING MULTIPLE SCLEROSIS
     Dosage: UNK UNK,UNK
     Route: 041
     Dates: start: 20171023, end: 20171026

REACTIONS (8)
  - Anaemia [Recovered/Resolved]
  - Rash [Recovered/Resolved]
  - Femur fracture [Not Recovered/Not Resolved]
  - Urinary tract infection [Recovering/Resolving]
  - Lymphopenia [Recovered/Resolved]
  - Monoclonal gammopathy [Not Recovered/Not Resolved]
  - Rash generalised [Recovered/Resolved]
  - Vitamin D deficiency [Recovering/Resolving]

NARRATIVE: CASE EVENT DATE: 20171028
